FAERS Safety Report 8832189 (Version 1)
Quarter: 2012Q4

REPORT INFORMATION
  Report Type: 
  Country: US (occurrence: US)
  Receive Date: 20121009
  Receipt Date: 20121009
  Transmission Date: 20130627
  Serious: Yes (Death, Hospitalization, Other)
  Sender: FDA-Public Use
  Company Number: US-CELGENEUS-163-21880-12092349

PATIENT
  Age: 76 Year
  Sex: Female
  Weight: 94.89 kg

DRUGS (1)
  1. REVLIMID [Suspect]
     Indication: MULTIPLE MYELOMA
     Dosage: 15 Milligram
     Route: 048
     Dates: start: 20120530, end: 2012

REACTIONS (3)
  - Death [Fatal]
  - Femur fracture [Unknown]
  - Fall [Unknown]
